FAERS Safety Report 6028516-5 (Version None)
Quarter: 2009Q1

REPORT INFORMATION
  Report Type: 
  Country: None (occurrence: None)
  Receive Date: 20090102
  Receipt Date: 20081218
  Transmission Date: 20090719
  Serious: Yes (Hospitalization)
  Sender: FDA-Public Use
  Company Number: 02100-JPN-07-0299

PATIENT
  Age: 58 Year
  Sex: Male

DRUGS (39)
  1. PLETAL [Suspect]
     Indication: THROMBOSIS
     Dosage: 200 MG, DAILY DOSE ORAL
     Route: 048
     Dates: start: 20070131, end: 20070617
  2. PLETAL [Suspect]
     Indication: THROMBOSIS PROPHYLAXIS
     Dosage: 200 MG, DAILY DOSE ORAL
     Route: 048
     Dates: start: 20070131, end: 20070617
  3. PLETAL [Suspect]
     Indication: THROMBOSIS
     Dosage: 200 MG, DAILY DOSE ORAL
     Route: 048
     Dates: start: 20070618, end: 20070821
  4. PLETAL [Suspect]
     Indication: THROMBOSIS PROPHYLAXIS
     Dosage: 200 MG, DAILY DOSE ORAL
     Route: 048
     Dates: start: 20070618, end: 20070821
  5. PLAVIX [Suspect]
     Indication: THROMBOSIS
     Dosage: 75 MG, DAILY DOSE ORAL
     Route: 048
     Dates: start: 20070131, end: 20070617
  6. PLAVIX [Suspect]
     Indication: THROMBOSIS PROPHYLAXIS
     Dosage: 75 MG, DAILY DOSE ORAL
     Route: 048
     Dates: start: 20070131, end: 20070617
  7. PLAVIX [Suspect]
     Indication: THROMBOSIS
     Dosage: 75 MG, DAILY DOSE ORAL
     Route: 048
     Dates: start: 20070718, end: 20070821
  8. PLAVIX [Suspect]
     Indication: THROMBOSIS PROPHYLAXIS
     Dosage: 75 MG, DAILY DOSE ORAL
     Route: 048
     Dates: start: 20070718, end: 20070821
  9. ASPIRIN [Concomitant]
  10. EPROSARTAN/HYDROCHLOROTHIAZIDE (EPROSARTAN/HYDROCHLOROTHIAZIDE) UNKNOW [Concomitant]
  11. LERCANIDIPINE HYDROCHLORIDE (LERCANIDIPINE HYDROCHLORIDE) UNKNOWN [Concomitant]
  12. HYDROCHLOROTHIAZIDE [Concomitant]
  13. ALPRAZOLAM [Concomitant]
  14. HYDROCHLOROTHIAZIDE [Concomitant]
  15. CALCIUM GLUCONATE (CALCIUM GLUCONATE) INJECTION [Concomitant]
  16. FUROSEMIDE (FUROSEMIDE) INJECTION [Concomitant]
  17. CIMETIDINE (CIMETIDINE) INJECTION [Concomitant]
  18. 20% ALBUMIN (20% ALBUMIN) INJECTION [Concomitant]
  19. GLAMIN INJ. (MADE BY GREENCROSS) (GLAMIN INJ. (MADE BY GREENCROSS)) IN [Concomitant]
  20. PN-TWIN INFUSION BAG (MADE BY HANALL (PN-TWIN INFUSION BAG (MADE BY HA [Concomitant]
  21. LEVOFLOXACIN [Concomitant]
  22. COUGH SYRUP S (MADE BY YUHAN) (COUGH SYRUP S (MADE BY YUHAN)) UNKNOWN [Concomitant]
  23. POTASSIUM CHLORIDE [Concomitant]
  24. MAGNESIUM HYDROXIDE (MAGNESIUM HYDROXIDE) UNKNOWN [Concomitant]
  25. DOMPERIDONE (DOMPERIDONE) [Concomitant]
  26. MOSAPRIDE CITRATE (MOSAPRIDE CITRATE) UNKNOWN [Concomitant]
  27. PAROXETINE HCL [Concomitant]
  28. CLONAZEPAM [Concomitant]
  29. ESCITALOPRAM OXALATE (ESCITALOPRAM OXALATE) [Concomitant]
  30. CARDUUS MARIANUS EXTRACT (CARDUUS MARIANUS EXTRACT) UNKNOWN [Concomitant]
  31. TAMSULOSIN HCL [Concomitant]
  32. TARAZOSIN (TARAZOSIN) UNKNOWN [Concomitant]
  33. GABAPENTIN [Concomitant]
  34. HYDROXYZINE HCL [Concomitant]
  35. URSA (MADE BY DAEWOONG (URSA (MADE BY DAEWOONG)) [Concomitant]
  36. ALFUZOSIN HYDROCHLORIDE (ALFUZOSIN HYDROCHLORIDE) [Concomitant]
  37. BENIDIPINE HYDROCHLORIDE (BENIDIPINE HYDROCHLORIDE) [Concomitant]
  38. OLMESARTAN MEDOXOMIL [Concomitant]
  39. ATORVASTATIN CALCIUM [Concomitant]

REACTIONS (15)
  - ALCOHOL POISONING [None]
  - ANAESTHETIC COMPLICATION NEUROLOGICAL [None]
  - BLOOD PRESSURE ABNORMAL [None]
  - FALL [None]
  - INFLAMMATION [None]
  - LUMBAR VERTEBRAL FRACTURE [None]
  - MUSCULOSKELETAL PAIN [None]
  - PAIN [None]
  - POST PROCEDURAL INFECTION [None]
  - PROCEDURAL HYPERTENSION [None]
  - PROCEDURAL PAIN [None]
  - PROPHYLAXIS [None]
  - RIB FRACTURE [None]
  - SPUTUM RETENTION [None]
  - WHEELCHAIR USER [None]
